FAERS Safety Report 13445910 (Version 1)
Quarter: 2017Q2

REPORT INFORMATION
  Report Type: Spontaneous
  Country: US (occurrence: US)
  Receive Date: 20170417
  Receipt Date: 20170417
  Transmission Date: 20170830
  Serious: No
  Sender: FDA-Public Use
  Company Number: US-ASTRAZENECA-2017SE37495

PATIENT
  Sex: Female
  Weight: 54 kg

DRUGS (5)
  1. BRILINTA [Suspect]
     Active Substance: TICAGRELOR
     Indication: STENT PLACEMENT
     Route: 048
     Dates: start: 20170317
  2. LIPITOR [Concomitant]
     Active Substance: ATORVASTATIN CALCIUM
     Indication: BLOOD CHOLESTEROL ABNORMAL
     Route: 065
  3. CELLCEPT [Concomitant]
     Active Substance: MYCOPHENOLATE MOFETIL\MYCOPHENOLATE MOFETIL HYDROCHLORIDE
     Indication: PROPHYLAXIS
     Route: 065
     Dates: start: 20070609
  4. PROGRAFT [Concomitant]
     Active Substance: TACROLIMUS
     Indication: PROPHYLAXIS
     Route: 065
     Dates: start: 20070609
  5. XARELTO [Concomitant]
     Active Substance: RIVAROXABAN
     Indication: ANTICOAGULANT THERAPY
     Route: 065
     Dates: start: 20150921

REACTIONS (5)
  - Off label use [Unknown]
  - Vomiting [Unknown]
  - Weight decreased [Unknown]
  - Epigastric discomfort [Unknown]
  - Diarrhoea [Unknown]
